FAERS Safety Report 9921437 (Version 1)
Quarter: 2014Q1

REPORT INFORMATION
  Report Type: Spontaneous
  Country: US (occurrence: None)
  Receive Date: 20140221
  Receipt Date: 20140221
  Transmission Date: 20141002
  Serious: Yes (Hospitalization)
  Sender: FDA-Public Use
  Company Number: None

PATIENT
  Age: 49 Year
  Sex: Female
  Weight: 110.9 kg

DRUGS (1)
  1. CISPLATIN [Suspect]
     Dosage: DAY 1 (1/7/14) AND DAY 29 (2/4/14)

REACTIONS (1)
  - Chest pain [None]
